FAERS Safety Report 4743433-6 (Version None)
Quarter: 2005Q3

REPORT INFORMATION
  Report Type: 
  Country: None (occurrence: None)
  Receive Date: 20050810
  Receipt Date: 20050810
  Transmission Date: 20060218
  Serious: Yes (Other)
  Sender: FDA-Public Use
  Company Number: None

PATIENT
  Sex: Female
  Weight: 68.0396 kg

DRUGS (2)
  1. EQUATE SALINE SOLUTION FOR NG CONTACT LENSES EQUATE -WALMART-BRAND SIG [Suspect]
  2. EQUATE SALINE SOLUTION FOR NG CONTACT LENSES EQUATE -WALMART-BRAND [Suspect]

REACTIONS (3)
  - EYE IRRITATION [None]
  - LACRIMATION INCREASED [None]
  - PHARMACEUTICAL PRODUCT COMPLAINT [None]
